FAERS Safety Report 6735642-1 (Version None)
Quarter: 2010Q2

REPORT INFORMATION
  Report Type: 
  Country: None (occurrence: None)
  Receive Date: 20100521
  Receipt Date: 20100518
  Transmission Date: 20101027
  Serious: Yes (Death)
  Sender: FDA-Public Use
  Company Number: PHHY2010FR32034

PATIENT
  Age: 67 Year
  Sex: Male

DRUGS (3)
  1. RASILEZ [Suspect]
     Dosage: 300 MG DAILY
  2. LODOZ [Concomitant]
  3. ZANIDIP [Concomitant]

REACTIONS (5)
  - CARDIO-RESPIRATORY ARREST [None]
  - MALAISE [None]
  - RESTLESSNESS [None]
  - URINE ODOUR ABNORMAL [None]
  - VOMITING [None]
